FAERS Safety Report 9903655 (Version 2)
Quarter: 2014Q1

REPORT INFORMATION
  Report Type: Spontaneous
  Country: PL (occurrence: PL)
  Receive Date: 20140217
  Receipt Date: 20140217
  Transmission Date: 20141002
  Serious: Yes (Other)
  Sender: FDA-Public Use
  Company Number: PL-BAXTER-2014BAX002293

PATIENT
  Age: 64 Year
  Sex: Female

DRUGS (6)
  1. ENDOXAN [Suspect]
     Indication: BREAST CANCER
     Route: 065
     Dates: start: 1997
  2. METHOTREXATE [Suspect]
     Indication: BREAST CANCER
     Route: 065
     Dates: start: 1997
  3. FLUOROURACIL [Suspect]
     Indication: BREAST CANCER
     Route: 065
     Dates: start: 1997
  4. BISOPROLOL [Concomitant]
     Indication: PRODUCT USED FOR UNKNOWN INDICATION
     Route: 065
  5. VINPOCETINE [Concomitant]
     Indication: PRODUCT USED FOR UNKNOWN INDICATION
     Route: 065
  6. SERTRALINE [Concomitant]
     Indication: PRODUCT USED FOR UNKNOWN INDICATION
     Route: 065

REACTIONS (2)
  - Breast cancer recurrent [Unknown]
  - Bone neoplasm [Unknown]
